FAERS Safety Report 22225053 (Version 4)
Quarter: 2023Q2

REPORT INFORMATION
  Report Type: Spontaneous
  Country: BE (occurrence: BE)
  Receive Date: 20230418
  Receipt Date: 20230519
  Transmission Date: 20230722
  Serious: Yes (Death, Hospitalization, Other)
  Sender: FDA-Public Use
  Company Number: BE-DSJP-DSE-2023-111371

PATIENT
  Sex: Male
  Weight: 115 kg

DRUGS (6)
  1. EDOXABAN TOSYLATE [Suspect]
     Active Substance: EDOXABAN TOSYLATE
     Indication: Atrial fibrillation
     Dosage: 60 MG, QD
     Route: 065
     Dates: start: 20170205, end: 20210815
  2. ALDACTONE [Concomitant]
     Active Substance: SPIRONOLACTONE
     Indication: Cardiac failure
     Dosage: UNK
     Route: 048
     Dates: start: 20180914, end: 20210816
  3. ATORVASTATIN CALCIUM\EZETIMIBE [Concomitant]
     Active Substance: ATORVASTATIN CALCIUM\EZETIMIBE
     Indication: Hypercholesterolaemia
     Dosage: UNK (STRENGTH: 10/40 UNITS UNKNOWN)
     Route: 048
     Dates: start: 20171124, end: 20210816
  4. BISOPROLOL [Concomitant]
     Active Substance: BISOPROLOL
     Indication: Cardiac failure
     Dosage: UNK
     Route: 048
     Dates: start: 20130601, end: 20210816
  5. TAMSULOSIN [Concomitant]
     Active Substance: TAMSULOSIN
     Indication: Benign prostatic hyperplasia
     Dosage: UNK (STRENGHT: 0.4 UNITS UNKNOWN)
     Route: 048
     Dates: start: 20130426, end: 20210816
  6. ALLOPURINOL [Concomitant]
     Active Substance: ALLOPURINOL
     Indication: Hyperuricaemia
     Dosage: UNK (STRENGTH: 300 UNITS UNKNOWN)
     Route: 048
     Dates: start: 20160315, end: 20210816

REACTIONS (3)
  - Hepatic haemorrhage [Fatal]
  - Gamma-glutamyltransferase increased [Fatal]
  - Hepatic adenoma [Fatal]

NARRATIVE: CASE EVENT DATE: 20180101
